FAERS Safety Report 15794210 (Version 1)
Quarter: 2018Q4

REPORT INFORMATION
  Report Type: Spontaneous
  Country: US (occurrence: US)
  Receive Date: 20181213
  Receipt Date: 20181213
  Transmission Date: 20190205
  Serious: No
  Sender: FDA-Public Use
  Company Number: None

PATIENT
  Age: 63 Year
  Sex: Female

DRUGS (1)
  1. SIMPONI [Suspect]
     Active Substance: GOLIMUMAB
     Route: 058
     Dates: start: 20180721

REACTIONS (4)
  - Rash macular [None]
  - Rash pruritic [None]
  - Drug effect decreased [None]
  - Exfoliative rash [None]

NARRATIVE: CASE EVENT DATE: 20181212
